FAERS Safety Report 8490962-8 (Version None)
Quarter: 2012Q3

REPORT INFORMATION
  Report Type: 
  Country: None (occurrence: None)
  Receive Date: 20120706
  Receipt Date: 20120627
  Transmission Date: 20120928
  Serious: Yes (Death)
  Sender: FDA-Public Use
  Company Number: US-CELGENEUS-163-21660-12051054

PATIENT
  Sex: Male

DRUGS (1)
  1. ABRAXANE [Suspect]
     Route: 048
     Dates: end: 20120101

REACTIONS (1)
  - LUNG NEOPLASM MALIGNANT [None]
